FAERS Safety Report 7059586-3 (Version None)
Quarter: 2010Q4

REPORT INFORMATION
  Report Type: 
  Country: None (occurrence: None)
  Receive Date: 20101025
  Receipt Date: 20101019
  Transmission Date: 20110411
  Serious: Yes (Death, Other)
  Sender: FDA-Public Use
  Company Number: PHHO2009TH06771

PATIENT
  Sex: Female
  Weight: 46 kg

DRUGS (2)
  1. AFINITOR [Suspect]
     Indication: RENAL CELL CARCINOMA
     Dosage: 5 MG/DAY
     Route: 048
     Dates: start: 20090518
  2. BEVACIZUMAB [Suspect]
     Indication: RENAL CELL CARCINOMA
     Dosage: 10 MG/KG DAILY
     Route: 042
     Dates: start: 20090518

REACTIONS (8)
  - APNOEA [None]
  - BONE PAIN [None]
  - HYPOPHAGIA [None]
  - HYPOVOLAEMIC SHOCK [None]
  - ORAL PAIN [None]
  - RESTLESSNESS [None]
  - SPEECH DISORDER [None]
  - STOMATITIS [None]
